FAERS Safety Report 16803943 (Version 1)
Quarter: 2019Q3

REPORT INFORMATION
  Report Type: Spontaneous
  Country: None (occurrence: US)
  Receive Date: 20190913
  Receipt Date: 20190913
  Transmission Date: 20191005
  Serious: No
  Sender: FDA-Public Use
  Company Number: US-BIO PRODUCTS LABORATORY LTD-2074423

PATIENT
  Age: 46 Year
  Sex: Female

DRUGS (5)
  1. METHYLPREDNISOLONE. [Concomitant]
     Active Substance: METHYLPREDNISOLONE
  2. GENERIC IVIG [Suspect]
     Active Substance: HUMAN IMMUNOGLOBULIN G
     Indication: HEPARIN-INDUCED THROMBOCYTOPENIA
     Route: 042
  3. ARGATROBAN. [Concomitant]
     Active Substance: ARGATROBAN
  4. GENERIC IVIG [Suspect]
     Active Substance: HUMAN IMMUNOGLOBULIN G
     Indication: INTRACRANIAL VENOUS SINUS THROMBOSIS
     Route: 042
  5. BIVALIRUDIN. [Concomitant]
     Active Substance: BIVALIRUDIN

REACTIONS (2)
  - Off label use [Recovered/Resolved]
  - Therapeutic product effect delayed [Recovered/Resolved]
